FAERS Safety Report 8179199 (Version 2)
Quarter: 2012Q4

REPORT INFORMATION
  Report Type: Spontaneous
  Country: US (occurrence: None)
  Receive Date: 20110930
  Receipt Date: 20121024
  Transmission Date: 20130627
  Serious: Yes (Other)
  Sender: FDA-Public Use
  Company Number: JPI-P-017134

PATIENT
  Age: 29 Year
  Sex: Female
  Weight: 54.43 kg

DRUGS (19)
  1. XYREM [Suspect]
     Indication: NARCOLEPSY
     Dosage: (6 gm, 2 in 1 D)
     Route: 048
     Dates: start: 200508
  2. XYREM [Suspect]
     Indication: EXCESSIVE DAYTIME SLEEPINESS
     Dosage: (6 gm, 2 in 1 D)
     Route: 048
     Dates: start: 200508
  3. XYREM [Suspect]
     Indication: NARCOLEPSY
     Route: 048
  4. XYREM [Suspect]
     Indication: EXCESSIVE DAYTIME SLEEPINESS
     Route: 048
  5. XYREM [Suspect]
     Indication: NARCOLEPSY
     Dosage: (7.5 gm, AT BEDTIME)
     Route: 048
     Dates: start: 20091028
  6. XYREM [Suspect]
     Indication: EXCESSIVE DAYTIME SLEEPINESS
     Dosage: (7.5 gm, AT BEDTIME)
     Route: 048
     Dates: start: 20091028
  7. ARMODAFINIL [Concomitant]
  8. NORTRIPTYLINE HYDROCHLORIDE [Concomitant]
  9. ZONISAMAIDE [Concomitant]
  10. RIZATRIPTAN [Concomitant]
  11. CELECOXIB [Concomitant]
  12. FENTANYL [Concomitant]
  13. CLONAZEPAM [Concomitant]
  14. CETIRIZINE HYDROCHLORIDE [Concomitant]
  15. PREGABALIN [Concomitant]
  16. MELATONIN [Concomitant]
  17. METHOCARBAMOL [Concomitant]
  18. HYDROCODONE BITARTRATE AND ACETAMINOPHEN [Concomitant]
  19. OXYCODONE HCL [Concomitant]

REACTIONS (7)
  - Endometriosis [None]
  - Urethritis [None]
  - Wound dehiscence [None]
  - Infective tenosynovitis [None]
  - Bone disorder [None]
  - Impaired healing [None]
  - Procedural pain [None]
